FAERS Safety Report 6072960-7 (Version None)
Quarter: 2009Q1

REPORT INFORMATION
  Report Type: 
  Country: None (occurrence: None)
  Receive Date: 20090206
  Receipt Date: 20090128
  Transmission Date: 20090719
  Serious: Yes (Other)
  Sender: FDA-Public Use
  Company Number: JPI-P-005997

PATIENT
  Age: 48 Year
  Sex: Female

DRUGS (2)
  1. XYREM [Suspect]
     Indication: NARCOLEPSY
     Dosage: 6 GM (3 GM, 2 IN 1 D) ,ORAL; 7.5 GM (3.75 GM, 2 IN 1 D) ,ORAL
     Route: 048
     Dates: start: 20071224
  2. XYREM [Suspect]
     Indication: NARCOLEPSY
     Dosage: 6 GM (3 GM, 2 IN 1 D) ,ORAL; 7.5 GM (3.75 GM, 2 IN 1 D) ,ORAL
     Route: 048
     Dates: start: 20081113

REACTIONS (2)
  - BARIATRIC GASTRIC BALLOON INSERTION [None]
  - COLD SWEAT [None]
